FAERS Safety Report 10228657 (Version 1)
Quarter: 2014Q2

REPORT INFORMATION
  Report Type: Spontaneous
  Country: US (occurrence: US)
  Receive Date: 20140610
  Receipt Date: 20140610
  Transmission Date: 20141212
  Serious: Yes (Hospitalization)
  Sender: FDA-Public Use
  Company Number: US-B.I. PHARMACEUTICALS,INC./RIDGEFIELD-2014-BI-25296BP

PATIENT
  Age: 55 Year
  Sex: Male
  Weight: 136 kg

DRUGS (2)
  1. PRADAXA [Suspect]
     Indication: ATRIAL FIBRILLATION
     Dosage: 300 MG
     Route: 048
     Dates: end: 20140604
  2. ASPIRIN [Concomitant]
     Route: 065
     Dates: end: 201405

REACTIONS (1)
  - Mouth haemorrhage [Not Recovered/Not Resolved]
